FAERS Safety Report 7382633-6 (Version None)
Quarter: 2011Q1

REPORT INFORMATION
  Report Type: 
  Country: None (occurrence: None)
  Receive Date: 20110329
  Receipt Date: 20110318
  Transmission Date: 20110831
  Serious: No
  Sender: FDA-Public Use
  Company Number: US-BAYER-2011-024540

PATIENT
  Sex: Female

DRUGS (1)
  1. BEYAZ [Suspect]
     Dosage: UNK
     Dates: start: 20110201

REACTIONS (3)
  - DIARRHOEA [None]
  - ABDOMINAL PAIN UPPER [None]
  - FATIGUE [None]
